FAERS Safety Report 22676840 (Version 5)
Quarter: 2023Q4

REPORT INFORMATION
  Report Type: Report from Study
  Country: MX (occurrence: MX)
  Receive Date: 20230706
  Receipt Date: 20231227
  Transmission Date: 20240109
  Serious: Yes (Other)
  Sender: FDA-Public Use
  Company Number: MX-002147023-NVSC2023MX130641

PATIENT
  Sex: Female

DRUGS (6)
  1. IMATINIB [Suspect]
     Active Substance: IMATINIB
     Indication: Chronic myeloid leukaemia
     Dosage: UNK
     Route: 048
  2. LOSARTAN [Concomitant]
     Active Substance: LOSARTAN
     Indication: Product used for unknown indication
     Dosage: UNK, QD (IN MORNING)
     Route: 065
  3. PREDNISONE [Concomitant]
     Active Substance: PREDNISONE
     Indication: Product used for unknown indication
     Dosage: UNK, QD (IN MORNING)
     Route: 065
  4. EPINASTINE [Concomitant]
     Active Substance: EPINASTINE
     Indication: Product used for unknown indication
     Dosage: UNK, QD (IN MORNING)
     Route: 065
  5. CELECOXIB [Concomitant]
     Active Substance: CELECOXIB
     Indication: Product used for unknown indication
     Dosage: UNK, QD (IN MORNING)
     Route: 065
  6. OMEPRAZOLE [Concomitant]
     Active Substance: OMEPRAZOLE
     Indication: Product used for unknown indication
     Dosage: UNK, QD (IN MORNING)
     Route: 065

REACTIONS (41)
  - Adenoma benign [Unknown]
  - Glaucoma [Unknown]
  - Cholelithiasis [Unknown]
  - Inflammation [Unknown]
  - Dysphonia [Unknown]
  - Weight increased [Unknown]
  - Ear pain [Unknown]
  - Hypertension [Unknown]
  - Dry eye [Unknown]
  - Blood cholesterol increased [Unknown]
  - Hypersensitivity [Unknown]
  - Constipation [Unknown]
  - Eye pain [Unknown]
  - Urticaria [Unknown]
  - Pruritus [Recovering/Resolving]
  - Weight decreased [Unknown]
  - Product taste abnormal [Unknown]
  - Increased appetite [Unknown]
  - Feeling of despair [Unknown]
  - Nodule [Unknown]
  - Neoplasm [Unknown]
  - Wound [Unknown]
  - Thyroid mass [Unknown]
  - Fear [Unknown]
  - Pain [Unknown]
  - Spinal pain [Unknown]
  - Flatulence [Unknown]
  - Hyperkeratosis [Unknown]
  - Fat tissue increased [Unknown]
  - Malaise [Unknown]
  - Oropharyngeal pain [Unknown]
  - Photophobia [Unknown]
  - Chest pain [Unknown]
  - Eye irritation [Unknown]
  - Influenza [Unknown]
  - Diarrhoea [Unknown]
  - Nausea [Unknown]
  - Nasopharyngitis [Unknown]
  - Decreased appetite [Unknown]
  - Asthenia [Unknown]
  - Gait disturbance [Unknown]
